FAERS Safety Report 17167672 (Version 5)
Quarter: 2020Q1

REPORT INFORMATION
  Report Type: Report from Study
  Country: US (occurrence: US)
  Receive Date: 20191218
  Receipt Date: 20200327
  Transmission Date: 20200409
  Serious: Yes (Hospitalization, Other)
  Sender: FDA-Public Use
  Company Number: NVSC2019US071943

PATIENT
  Age: 72 Year
  Sex: Male

DRUGS (4)
  1. ENTRESTO [Suspect]
     Active Substance: SACUBITRIL\VALSARTAN
     Dosage: 24 MG, ONCE2SDO
     Route: 048
     Dates: start: 20191212
  2. AMIODARONE [Concomitant]
     Active Substance: AMIODARONE
     Indication: PRODUCT USED FOR UNKNOWN INDICATION
     Dosage: UNK
     Route: 065
  3. ENTRESTO [Suspect]
     Active Substance: SACUBITRIL\VALSARTAN
     Dosage: 1 DF (24/26 MG), QD
     Route: 065
  4. ENTRESTO [Suspect]
     Active Substance: SACUBITRIL\VALSARTAN
     Indication: CARDIAC FAILURE CHRONIC
     Dosage: 1 DF (SACUBITRIL 24MG AND VALSARTAN 26MG), BID
     Route: 048
     Dates: start: 20191101

REACTIONS (15)
  - Cough [Not Recovered/Not Resolved]
  - Inappropriate schedule of product administration [Unknown]
  - Haemoglobin decreased [Recovering/Resolving]
  - Dyspnoea [Recovering/Resolving]
  - Pleural effusion [Unknown]
  - Gastrointestinal haemorrhage [Recovering/Resolving]
  - Hypotension [Recovered/Resolved]
  - Prescribed underdose [Unknown]
  - Intervertebral disc degeneration [Recovering/Resolving]
  - Atrial fibrillation [Unknown]
  - Dizziness [Recovered/Resolved]
  - Sinusitis [Recovering/Resolving]
  - Bronchitis [Recovering/Resolving]
  - Decreased appetite [Unknown]
  - Joint swelling [Unknown]

NARRATIVE: CASE EVENT DATE: 20191114
